FAERS Safety Report 24357889 (Version 1)
Quarter: 2024Q3

REPORT INFORMATION
  Report Type: Spontaneous
  Country: US (occurrence: US)
  Receive Date: 20240924
  Receipt Date: 20240924
  Transmission Date: 20241017
  Serious: Yes (Death)
  Sender: VIFOR
  Company Number: US-Vifor (International) Inc.-VIT-2024-08607

PATIENT
  Age: 62 Year
  Sex: Female
  Weight: 87 kg

DRUGS (1)
  1. MIRCERA [Suspect]
     Active Substance: METHOXY POLYETHYLENE GLYCOL-EPOETIN BETA
     Indication: Nephrogenic anaemia
     Dosage: FIRST DOSE
     Route: 040
     Dates: start: 20240914, end: 20240914

REACTIONS (5)
  - Drug hypersensitivity [Fatal]
  - Blood pressure decreased [Fatal]
  - Unresponsive to stimuli [Fatal]
  - Apnoea [Fatal]
  - Pulse absent [Fatal]

NARRATIVE: CASE EVENT DATE: 20240914
